FAERS Safety Report 11370947 (Version 2)
Quarter: 2015Q3

REPORT INFORMATION
  Report Type: Spontaneous
  Country: US (occurrence: US)
  Receive Date: 20150812
  Receipt Date: 20150928
  Transmission Date: 20151125
  Serious: Yes (Disabling)
  Sender: FDA-Public Use
  Company Number: CHPA2015US009377

PATIENT
  Sex: Female

DRUGS (2)
  1. DESENEX NOS [Suspect]
     Active Substance: CLOTRIMAZOLE OR MICONAZOLE NITRATE
     Indication: TINEA PEDIS
     Dosage: UNK
     Route: 061
  2. DESENEX NOS [Suspect]
     Active Substance: CLOTRIMAZOLE OR MICONAZOLE NITRATE
     Indication: PROPHYLAXIS

REACTIONS (2)
  - Product use issue [Unknown]
  - Multiple sclerosis [Not Recovered/Not Resolved]
